FAERS Safety Report 22106862 (Version 1)
Quarter: 2023Q1

REPORT INFORMATION
  Report Type: Report from Study
  Country: CA (occurrence: CA)
  Receive Date: 20230317
  Receipt Date: 20230317
  Transmission Date: 20230418
  Serious: Yes (Hospitalization, Other)
  Sender: FDA-Public Use
  Company Number: CA-SA-SAC20230315001095

PATIENT
  Age: 67 Year
  Sex: Female

DRUGS (1)
  1. SEVELAMER HYDROCHLORIDE [Suspect]
     Active Substance: SEVELAMER HYDROCHLORIDE
     Indication: Chronic kidney disease
     Dosage: 800MG,BID
     Route: 048

REACTIONS (3)
  - Gangrene [Unknown]
  - Localised infection [Unknown]
  - Leg amputation [Unknown]
